FAERS Safety Report 22107800 (Version 1)
Quarter: 2023Q1

REPORT INFORMATION
  Report Type: Spontaneous
  Country: JP (occurrence: JP)
  Receive Date: 20230317
  Receipt Date: 20230317
  Transmission Date: 20230417
  Serious: Yes (Other)
  Sender: FDA-Public Use
  Company Number: JP-MSD-2303JPN002257J

PATIENT
  Age: 45 Year
  Sex: Male

DRUGS (3)
  1. ZOLINZA [Suspect]
     Active Substance: VORINOSTAT
     Indication: Cutaneous T-cell lymphoma
     Dosage: UNK
     Route: 065
     Dates: start: 2011
  2. ZOLINZA [Suspect]
     Active Substance: VORINOSTAT
     Dosage: UNK, INTERMITTENT
     Route: 065
  3. ZOLINZA [Suspect]
     Active Substance: VORINOSTAT
     Dosage: UNK
     Route: 065

REACTIONS (3)
  - Malignant neoplasm progression [Unknown]
  - Squamous cell carcinoma of skin [Unknown]
  - Intentional product misuse [Unknown]
